FAERS Safety Report 6889896-1 (Version None)
Quarter: 2010Q3

REPORT INFORMATION
  Report Type: 
  Country: None (occurrence: None)
  Receive Date: 20100730
  Receipt Date: 20080611
  Transmission Date: 20110219
  Serious: No
  Sender: FDA-Public Use
  Company Number: US-PFIZER INC-2008049862

PATIENT
  Age: 70 Year
  Sex: Female
  Weight: 65.909 kg

DRUGS (4)
  1. LIPITOR [Suspect]
     Indication: BLOOD CHOLESTEROL INCREASED
     Dates: start: 20080401
  2. SYNTHROID [Concomitant]
  3. PREMARIN [Concomitant]
     Dosage: 2 EVERY 1 WEEKS
  4. ZETIA [Concomitant]

REACTIONS (2)
  - MUSCULOSKELETAL STIFFNESS [None]
  - MYALGIA [None]
